FAERS Safety Report 18194256 (Version 1)
Quarter: 2020Q3

REPORT INFORMATION
  Report Type: Report from Study
  Country: US (occurrence: US)
  Receive Date: 20200825
  Receipt Date: 20200825
  Transmission Date: 20201103
  Serious: Yes (Death, Hospitalization)
  Sender: FDA-Public Use
  Company Number: US-ACTELION-A-NJ2019-195075

PATIENT
  Age: 62 Year
  Sex: Female
  Weight: 108.84 kg

DRUGS (2)
  1. OPSUMIT [Suspect]
     Active Substance: MACITENTAN
     Indication: PULMONARY HYPERTENSION
     Dosage: 10 MG, QD
     Route: 048
  2. REMODULIN [Concomitant]
     Active Substance: TREPROSTINIL
     Dosage: 48 NG/KG, PER MIN

REACTIONS (7)
  - Dry throat [Not Recovered/Not Resolved]
  - Paranasal sinus hyposecretion [Not Recovered/Not Resolved]
  - Catheter site pruritus [Unknown]
  - Peripheral swelling [Not Recovered/Not Resolved]
  - Product dose omission issue [Unknown]
  - Dyspnoea [Unknown]
  - Death [Fatal]

NARRATIVE: CASE EVENT DATE: 20200812
